FAERS Safety Report 15733977 (Version 1)
Quarter: 2018Q4

REPORT INFORMATION
  Report Type: Spontaneous
  Country: US (occurrence: US)
  Receive Date: 20181203
  Receipt Date: 20181203
  Transmission Date: 20190205
  Serious: Yes (Death)
  Sender: FDA-Public Use
  Company Number: None

PATIENT
  Age: 75 Year
  Weight: 60.78 kg

DRUGS (2)
  1. FLUPHENAZINE 5MG [Suspect]
     Active Substance: FLUPHENAZINE
     Indication: PSYCHOTIC DISORDER
     Route: 048
     Dates: start: 20181107
  2. FLUPHENAZINE 25MG/ML [Suspect]
     Active Substance: FLUPHENAZINE
     Route: 030
     Dates: start: 20181108

REACTIONS (1)
  - Extrapyramidal disorder [None]

NARRATIVE: CASE EVENT DATE: 20181107
